FAERS Safety Report 4371790-1 (Version None)
Quarter: 2004Q2

REPORT INFORMATION
  Report Type: 
  Country: None (occurrence: None)
  Receive Date: 20040604
  Receipt Date: 20040604
  Transmission Date: 20050107
  Serious: Yes (Other)
  Sender: FDA-Public Use
  Company Number: None

PATIENT
  Age: 43 Year
  Sex: Female
  Weight: 68.9467 kg

DRUGS (1)
  1. LEVAQUIN [Suspect]
     Indication: ANXIETY
     Dosage: 1 PILL
     Dates: start: 20040521, end: 20040521

REACTIONS (3)
  - FEAR [None]
  - PSYCHOTIC DISORDER [None]
  - THINKING ABNORMAL [None]
